FAERS Safety Report 6311140-4 (Version None)
Quarter: 2009Q3

REPORT INFORMATION
  Report Type: 
  Country: None (occurrence: None)
  Receive Date: 20090817
  Receipt Date: 20090807
  Transmission Date: 20100115
  Serious: Yes (Hospitalization)
  Sender: FDA-Public Use
  Company Number: US-ELI_LILLY_AND_COMPANY-US200908001695

PATIENT
  Age: 70 Year
  Sex: Female

DRUGS (2)
  1. FORTEO [Suspect]
     Dosage: UNK, UNK
     Dates: start: 20081101, end: 20090101
  2. FORTEO [Suspect]
     Dosage: UNK, UNK
     Dates: start: 20090201

REACTIONS (7)
  - ASTHENIA [None]
  - CHRONIC OBSTRUCTIVE PULMONARY DISEASE [None]
  - DYSPNOEA [None]
  - EMPHYSEMA [None]
  - INJECTION SITE STREAKING [None]
  - INJECTION SITE URTICARIA [None]
  - INJECTION SITE WARMTH [None]
